FAERS Safety Report 15310677 (Version 2)
Quarter: 2018Q3

REPORT INFORMATION
  Report Type: Spontaneous
  Country: NL (occurrence: NL)
  Receive Date: 20180823
  Receipt Date: 20180824
  Transmission Date: 20181010
  Serious: Yes (Congenital Anomaly, Other)
  Sender: FDA-Public Use
  Company Number: NL-SCIEGEN PHARMACEUTICALS INC-2018SCILIT00574

PATIENT

DRUGS (1)
  1. FLUOXETINE CAPSULES, USP [Suspect]
     Active Substance: FLUOXETINE HYDROCHLORIDE
     Indication: PRODUCT USED FOR UNKNOWN INDICATION
     Dosage: UNK
     Route: 064

REACTIONS (2)
  - Foetal exposure during pregnancy [Unknown]
  - Hypoplastic left heart syndrome [Unknown]
